FAERS Safety Report 7920492-0 (Version None)
Quarter: 2011Q4

REPORT INFORMATION
  Report Type: 
  Country: None (occurrence: None)
  Receive Date: 20111117
  Receipt Date: 20111109
  Transmission Date: 20120403
  Serious: Yes (Other)
  Sender: FDA-Public Use
  Company Number: PHHY2011JP82225

PATIENT
  Age: 31 Year
  Sex: Female

DRUGS (8)
  1. DEPAKENE [Concomitant]
  2. SILECE [Concomitant]
     Dosage: 2 MG, UNK
  3. LORAZEPAM [Concomitant]
  4. DICLOFENAC SODIUM [Suspect]
     Indication: MIGRAINE
     Dosage: UNK UKN, PRN
     Route: 048
  5. PAXIL [Concomitant]
     Dosage: 20 MG, UNK
     Route: 048
  6. DEPAS [Concomitant]
     Dosage: 1 MG, UNK
  7. AMERGE [Concomitant]
     Dosage: 2.5 MG, UNK
  8. MEILAX [Concomitant]
     Dosage: 1 MG, UNK

REACTIONS (1)
  - CATARACT [None]
